FAERS Safety Report 11354493 (Version 1)
Quarter: 2015Q3

REPORT INFORMATION
  Report Type: Spontaneous
  Country: US (occurrence: US)
  Receive Date: 20150807
  Receipt Date: 20150807
  Transmission Date: 20151125
  Serious: No
  Sender: FDA-Public Use
  Company Number: US-JNJFOC-20150207607

PATIENT
  Sex: Female
  Weight: 63.5 kg

DRUGS (4)
  1. WOMENS ROGAINE [Suspect]
     Active Substance: MINOXIDIL
     Indication: ALOPECIA
     Dosage: 2-3 ML - ALL OVER THE SCALP
     Route: 061
  2. CHLOROQUINE [Concomitant]
     Active Substance: CHLOROQUINE\CHLOROQUINE PHOSPHATE
     Indication: CUTANEOUS LUPUS ERYTHEMATOSUS
     Dosage: SEVERAL YEARS
     Route: 065
  3. WOMENS ROGAINE [Suspect]
     Active Substance: MINOXIDIL
     Route: 061
  4. DAPSONE. [Concomitant]
     Active Substance: DAPSONE
     Indication: CUTANEOUS LUPUS ERYTHEMATOSUS
     Dosage: SEVERAL YEARS
     Route: 065

REACTIONS (4)
  - Hair texture abnormal [Not Recovered/Not Resolved]
  - Wrong technique in product usage process [Unknown]
  - Overdose [Unknown]
  - Skin disorder [Unknown]
